FAERS Safety Report 5414205-4 (Version None)
Quarter: 2007Q3

REPORT INFORMATION
  Report Type: 
  Country: None (occurrence: None)
  Receive Date: 20070814
  Receipt Date: 20070802
  Transmission Date: 20080115
  Serious: Yes (Other)
  Sender: FDA-Public Use
  Company Number: US-PFIZER INC-2007064384

PATIENT
  Sex: Female
  Weight: 52.3 kg

DRUGS (8)
  1. XALATAN [Suspect]
     Indication: GLAUCOMA
  2. ACTONEL [Concomitant]
  3. METOPROLOL SUCCINATE [Concomitant]
  4. NORVASC [Concomitant]
  5. DOXYCYCLINE [Concomitant]
  6. ALLEGRA [Concomitant]
  7. OCUPRESS [Concomitant]
  8. BACITRACIN [Concomitant]

REACTIONS (1)
  - CATARACT OPERATION [None]
